FAERS Safety Report 8788274 (Version 3)
Quarter: 2013Q1

REPORT INFORMATION
  Report Type: Spontaneous
  Country: US (occurrence: US)
  Receive Date: 20120914
  Receipt Date: 20130305
  Transmission Date: 20140127
  Serious: No
  Sender: FDA-Public Use
  Company Number: US-VERTEX PHARMACEUTICAL INC.-AE-2012-011867

PATIENT
  Age: 61 Year
  Sex: Male
  Weight: 75 kg

DRUGS (4)
  1. INCIVEK [Suspect]
     Indication: HEPATITIS C
     Dosage: 750 MG, TID
     Route: 048
     Dates: start: 20120801
  2. RIBAVIRIN [Suspect]
     Indication: HEPATITIS C
     Dosage: 600 MG AM/400 MG PM
     Route: 048
     Dates: start: 20120801
  3. PEGASYS [Suspect]
     Indication: HEPATITIS C
     Dosage: 180 ?G, QW
     Route: 058
     Dates: start: 20120801
  4. FLU VACCINATION [Concomitant]
     Dosage: UNK
     Dates: start: 20120914

REACTIONS (3)
  - Drug dose omission [Recovered/Resolved]
  - Inappropriate schedule of drug administration [Unknown]
  - Pruritus generalised [Not Recovered/Not Resolved]
